FAERS Safety Report 5801625-9 (Version None)
Quarter: 2008Q3

REPORT INFORMATION
  Report Type: 
  Country: None (occurrence: None)
  Receive Date: 20080707
  Receipt Date: 20080704
  Transmission Date: 20090109
  Serious: Yes (Other)
  Sender: FDA-Public Use
  Company Number: A0736159A

PATIENT
  Age: 35 Year
  Sex: Male

DRUGS (6)
  1. ALLI [Suspect]
     Dates: start: 20080310, end: 20080609
  2. WELLBUTRIN [Concomitant]
     Route: 048
  3. PAXIL [Concomitant]
     Route: 048
  4. LITHOBID [Concomitant]
     Route: 048
  5. CENTRUM [Concomitant]
     Route: 048
  6. VITAMIN [Concomitant]
     Route: 048

REACTIONS (2)
  - ANAEMIA [None]
  - FATIGUE [None]
